FAERS Safety Report 13944164 (Version 1)
Quarter: 2017Q3

REPORT INFORMATION
  Report Type: Spontaneous
  Country: US (occurrence: US)
  Receive Date: 20170907
  Receipt Date: 20170907
  Transmission Date: 20171128
  Serious: Yes (Hospitalization)
  Sender: FDA-Public Use
  Company Number: US-ROCHE-1348954

PATIENT
  Age: 83 Year
  Sex: Female

DRUGS (1)
  1. RITUXAN [Suspect]
     Active Substance: RITUXIMAB
     Indication: RHEUMATOID ARTHRITIS
     Dosage: STANDARD DOSE FOR RITUXAN RA
     Route: 065

REACTIONS (3)
  - Hypogammaglobulinaemia [Unknown]
  - Anaemia [Unknown]
  - Pneumonia [Unknown]
